FAERS Safety Report 7690714-2 (Version None)
Quarter: 2011Q3

REPORT INFORMATION
  Report Type: 
  Country: None (occurrence: None)
  Receive Date: 20110818
  Receipt Date: 20110808
  Transmission Date: 20111222
  Serious: Yes (Hospitalization)
  Sender: FDA-Public Use
  Company Number: HU-SANOFI-AVENTIS-2011SA051008

PATIENT
  Sex: Male

DRUGS (5)
  1. FUROSEMIDE [Suspect]
     Route: 065
  2. SPIRONOLACTONE [Interacting]
     Dosage: DOSE INCREASED
     Route: 065
  3. POTASSIUM ACETATE [Interacting]
     Route: 065
  4. SPIRONOLACTONE [Interacting]
     Dosage: INCREASED DOSE
     Route: 065
  5. ACE INHIBITOR NOS [Interacting]
     Dosage: INCREASED DOSE
     Route: 065

REACTIONS (3)
  - DRUG INTERACTION [None]
  - ASTHENIA [None]
  - HYPERKALAEMIA [None]
